FAERS Safety Report 7995647-X (Version None)
Quarter: 2011Q4

REPORT INFORMATION
  Report Type: 
  Country: None (occurrence: None)
  Receive Date: 20111220
  Receipt Date: 20111205
  Transmission Date: 20120403
  Serious: Yes (Hospitalization, Other)
  Sender: FDA-Public Use
  Company Number: GB-ELI_LILLY_AND_COMPANY-GB201108003639

PATIENT
  Age: 37 Year
  Sex: Female

DRUGS (4)
  1. ZYPREXA [Suspect]
     Indication: BRIEF PSYCHOTIC DISORDER, WITH POSTPARTUM ONSET
     Dosage: 5 MG, UNK
     Route: 048
     Dates: start: 20101102
  2. ZYPREXA [Suspect]
     Dosage: 7.5 MG, QD
     Route: 048
     Dates: start: 20111104
  3. ZYPREXA [Suspect]
     Dosage: 10 MG, UNK
     Dates: end: 20111108
  4. ZYPREXA [Suspect]
     Dosage: 2.5 MG, PRN

REACTIONS (2)
  - HYPERTENSION [None]
  - CEREBROVASCULAR ACCIDENT [None]
